FAERS Safety Report 6298394-8 (Version None)
Quarter: 2009Q3

REPORT INFORMATION
  Report Type: 
  Country: None (occurrence: None)
  Receive Date: 20090805
  Receipt Date: 20090728
  Transmission Date: 20100115
  Serious: Yes (Hospitalization, Other)
  Sender: FDA-Public Use
  Company Number: PHHO2008IT14120

PATIENT
  Sex: Male
  Weight: 57 kg

DRUGS (5)
  1. AMN107 AMN+CAP [Suspect]
     Indication: CHRONIC MYELOID LEUKAEMIA
     Dosage: 600MG
     Route: 048
     Dates: start: 20060314, end: 20090610
  2. AMN107 AMN+CAP [Suspect]
     Dosage: 600MG
     Route: 048
     Dates: end: 20090713
  3. NOVONORM [Concomitant]
  4. ASPIRIN [Concomitant]
  5. SELEPARINA [Concomitant]

REACTIONS (10)
  - ARTERIAL BYPASS OPERATION [None]
  - ARTERIAL STENT INSERTION [None]
  - DIABETIC VASCULAR DISORDER [None]
  - FOOT AMPUTATION [None]
  - NECROSIS [None]
  - PERIPHERAL ARTERY ANGIOPLASTY [None]
  - POSTOPERATIVE WOUND INFECTION [None]
  - THROMBOSIS [None]
  - TOE AMPUTATION [None]
  - VASCULAR GRAFT [None]
